FAERS Safety Report 5394470-2 (Version None)
Quarter: 2007Q3

REPORT INFORMATION
  Report Type: 
  Country: None (occurrence: None)
  Receive Date: 20070723
  Receipt Date: 20070328
  Transmission Date: 20080115
  Serious: No
  Sender: FDA-Public Use
  Company Number: US-AMGEN-US217184

PATIENT
  Sex: Female
  Weight: 81.3 kg

DRUGS (1)
  1. VECTIBIX [Suspect]
     Indication: COLORECTAL CANCER
     Route: 042
     Dates: start: 20070118

REACTIONS (2)
  - ERYTHEMA [None]
  - RASH ERYTHEMATOUS [None]
